FAERS Safety Report 19006292 (Version 2)
Quarter: 2025Q4

REPORT INFORMATION
  Report Type: Spontaneous
  Country: GB (occurrence: GB)
  Receive Date: 20210315
  Receipt Date: 20251013
  Transmission Date: 20260118
  Serious: Yes (Other)
  Sender: CELLTRION
  Company Number: GB-CELLTRION INC.-2021GB003134

PATIENT

DRUGS (2)
  1. INFLIXIMAB [Suspect]
     Active Substance: INFLIXIMAB
     Indication: Behcet^s syndrome
     Dosage: 120 MG EVERY 2 WEEKS (PRESCRIBED)
  2. INFLIXIMAB [Suspect]
     Active Substance: INFLIXIMAB
     Dosage: 120 MG EVERY WEEK (DELIVERY, PREVIOUS INFUSION IN HOSPITAL)
     Route: 058
     Dates: start: 202102

REACTIONS (10)
  - Blindness [Not Recovered/Not Resolved]
  - Renal impairment [Not Recovered/Not Resolved]
  - Wheelchair user [Unknown]
  - Gait disturbance [Unknown]
  - Decreased immune responsiveness [Unknown]
  - Lower limb fracture [Not Recovered/Not Resolved]
  - Eye infection [Unknown]
  - Pain [Unknown]
  - Fatigue [Unknown]
  - Intentional product use issue [Unknown]
